FAERS Safety Report 4621494-2 (Version None)
Quarter: 2005Q1

REPORT INFORMATION
  Report Type: 
  Country: None (occurrence: None)
  Receive Date: 20050328
  Receipt Date: 20050318
  Transmission Date: 20050727
  Serious: Yes (Hospitalization)
  Sender: FDA-Public Use
  Company Number: FRWYE518521MAR05

PATIENT
  Age: 54 Year
  Sex: Male

DRUGS (7)
  1. BISOPROLOL FUMARATE [Suspect]
     Indication: HYPERTENSION
     Dosage: 10 MG 1X PER 1 DAY ORAL
     Route: 048
     Dates: end: 20020401
  2. BISOPROLOL FUMARATE [Suspect]
     Indication: HYPERTENSION
     Dosage: 10 MG 1X PER 1 DAY ORAL
     Route: 048
     Dates: start: 20020101
  3. COVERSYL (PERINDOPRIL, , 0) [Suspect]
     Indication: HYPERTENSION
     Dosage: 4 MG 1X PER 1 DAY ORAL
     Route: 048
     Dates: start: 20020401
  4. FLUDEX (INDAPAMIDE, , 0) [Suspect]
     Indication: HYPERTENSION
     Dates: end: 20020401
  5. GLUCOPHAGE [Suspect]
     Indication: DIABETES MELLITUS NON-INSULIN-DEPENDENT
  6. MEDIATOR (BENFLUOREX HYDROCHLORIDE, , 0) [Suspect]
     Indication: DYSLIPIDAEMIA
     Dosage: 150 MG 2X PER 1 DAY
  7. NOVONORM (REPAGLINIDE) [Concomitant]

REACTIONS (5)
  - MUSCLE ATROPHY [None]
  - PEMPHIGOID [None]
  - RENAL ONCOCYTOMA [None]
  - SPINAL COMPRESSION FRACTURE [None]
  - WEIGHT DECREASED [None]
